FAERS Safety Report 11074040 (Version 1)
Quarter: 2015Q2

REPORT INFORMATION
  Report Type: Spontaneous
  Country: US (occurrence: US)
  Receive Date: 20150429
  Receipt Date: 20150429
  Transmission Date: 20150821
  Serious: No
  Sender: FDA-Public Use
  Company Number: US-ASTRAZENECA-2015SE37514

PATIENT
  Age: 645 Month
  Sex: Male
  Weight: 86.2 kg

DRUGS (3)
  1. RHINOCORT AQUA [Suspect]
     Active Substance: BUDESONIDE
     Indication: EAR PAIN
     Dosage: 2 SPRAYS, DAILY
     Route: 045
     Dates: start: 201501
  2. RANITIDINE [Concomitant]
     Active Substance: RANITIDINE\RANITIDINE HYDROCHLORIDE
     Indication: DYSPEPSIA
     Route: 048
  3. RHINOCORT AQUA [Suspect]
     Active Substance: BUDESONIDE
     Indication: EAR PAIN
     Dosage: DAILY
     Route: 045

REACTIONS (4)
  - Ear pain [Unknown]
  - Intentional product misuse [Unknown]
  - Drug effect decreased [Unknown]
  - Product use issue [Unknown]

NARRATIVE: CASE EVENT DATE: 201501
